FAERS Safety Report 4335489-X (Version None)
Quarter: 2004Q1

REPORT INFORMATION
  Report Type: 
  Country: None (occurrence: None)
  Receive Date: 20040330
  Receipt Date: 20040116
  Transmission Date: 20041129
  Serious: No
  Sender: FDA-Public Use
  Company Number: 27565

PATIENT
  Age: 85 Year
  Sex: Female
  Weight: 68.0396 kg

DRUGS (6)
  1. TRAVATAN [Suspect]
     Indication: GLAUCOMA
  2. SYNTHROID [Concomitant]
  3. TRIAMTERENE AND HYDROCHLOROTHIAZID [Concomitant]
  4. MIACALCIN [Concomitant]
  5. PEPCID [Concomitant]
  6. ASPIRIN [Concomitant]

REACTIONS (3)
  - EYELIDS PRURITUS [None]
  - MADAROSIS [None]
  - SKIN HYPERPIGMENTATION [None]
